FAERS Safety Report 4810111-4 (Version None)
Quarter: 2005Q4

REPORT INFORMATION
  Report Type: 
  Country: None (occurrence: None)
  Receive Date: 20051026
  Receipt Date: 20051014
  Transmission Date: 20060501
  Serious: Yes (Hospitalization, Other)
  Sender: FDA-Public Use
  Company Number: 2005AP05375

PATIENT
  Age: 20560 Day
  Sex: Female
  Weight: 85 kg

DRUGS (14)
  1. IRESSA [Suspect]
     Indication: RECTAL CANCER
     Route: 048
     Dates: start: 20050816, end: 20050913
  2. RADIOTHERAPY [Suspect]
     Indication: RECTAL CANCER
  3. FLUOROURACIL [Suspect]
     Indication: RECTAL CANCER
     Route: 042
     Dates: start: 20050816, end: 20051010
  4. DISSENTEN [Concomitant]
     Indication: DIARRHOEA
     Dates: start: 20050902
  5. KYTRIL [Concomitant]
     Indication: NAUSEA
     Dates: start: 20050909, end: 20050930
  6. KYTRIL [Concomitant]
     Indication: VOMITING
     Dates: start: 20050909, end: 20050930
  7. PARIET [Concomitant]
     Indication: GASTRITIS
     Dates: start: 20050909, end: 20050930
  8. SOLDESAM [Concomitant]
     Indication: PROCTITIS
     Dates: start: 20050914, end: 20050930
  9. ENAPREN [Concomitant]
     Indication: HYPERTENSION
  10. EUTIROX [Concomitant]
     Indication: HYPOTHYROIDISM
  11. GLUCOPHAGE [Concomitant]
     Indication: DIABETES MELLITUS
  12. ZOLOFT [Concomitant]
     Indication: DEPRESSION
  13. RIZEN [Concomitant]
     Indication: INSOMNIA
  14. AULIN [Concomitant]
     Indication: DYSPNOEA
     Dates: start: 20050831, end: 20050906

REACTIONS (2)
  - CATHETER RELATED COMPLICATION [None]
  - VENOUS THROMBOSIS LIMB [None]
